FAERS Safety Report 4425543-6 (Version None)
Quarter: 2004Q3

REPORT INFORMATION
  Report Type: 
  Country: None (occurrence: None)
  Receive Date: 20040810
  Receipt Date: 20040217
  Transmission Date: 20050211
  Serious: Yes (Disabling)
  Sender: FDA-Public Use
  Company Number: 200401315

PATIENT
  Age: 41 Year
  Sex: Female
  Weight: 56.246 kg

DRUGS (3)
  1. BOTOX PURIFIED NEUROTOXIN COMPLEX [Suspect]
     Indication: MIGRAINE
  2. BOTOX PLACEBO [Suspect]
     Indication: MIGRAINE
  3. AMBIEN [Concomitant]

REACTIONS (9)
  - ARTHRALGIA [None]
  - CONSTIPATION [None]
  - CONTUSION [None]
  - DRUG INEFFECTIVE [None]
  - MYALGIA [None]
  - MYOSITIS [None]
  - NECK PAIN [None]
  - PAIN [None]
  - TENSION [None]
